FAERS Safety Report 13981735 (Version 1)
Quarter: 2017Q3

REPORT INFORMATION
  Report Type: Spontaneous
  Country: US (occurrence: US)
  Receive Date: 20170918
  Receipt Date: 20170918
  Transmission Date: 20171128
  Serious: No
  Sender: FDA-Public Use
  Company Number: US-BION-006393

PATIENT
  Age: 66 Year
  Sex: Female
  Weight: 61.23 kg

DRUGS (1)
  1. ZYRTEC [Suspect]
     Active Substance: CETIRIZINE HYDROCHLORIDE
     Indication: HYPERSENSITIVITY
     Dosage: AT BED TIME NIGHTLY

REACTIONS (3)
  - Palpitations [Unknown]
  - Chest discomfort [None]
  - Nausea [Unknown]
